FAERS Safety Report 4349012-7 (Version None)
Quarter: 2004Q2

REPORT INFORMATION
  Report Type: 
  Country: None (occurrence: None)
  Receive Date: 20040427
  Receipt Date: 20040427
  Transmission Date: 20050107
  Serious: Yes (Hospitalization)
  Sender: FDA-Public Use
  Company Number: None

PATIENT
  Age: 57 Year
  Sex: Female
  Weight: 75.7507 kg

DRUGS (7)
  1. PEG INTRON 150 MGM (SCHERING) [Suspect]
     Indication: HEPATIC CIRRHOSIS
     Dosage: 255 SQ MGM
     Route: 058
     Dates: start: 20040109
  2. PEG INTRON 150 MGM (SCHERING) [Suspect]
     Indication: HEPATITIS C
     Dosage: 255 SQ MGM
     Route: 058
     Dates: start: 20040109
  3. RIBAVIRIN [Suspect]
     Indication: HEPATIC CIRRHOSIS
     Dosage: 1000 MG DAILY
     Dates: start: 20040109
  4. LANTUS HUMOLOG INSULIN [Concomitant]
  5. NORVASC [Concomitant]
  6. DIOVAN [Concomitant]
  7. URSA [Concomitant]

REACTIONS (5)
  - DYSPNOEA [None]
  - NAUSEA [None]
  - PAIN [None]
  - REFUSAL OF TREATMENT BY PATIENT [None]
  - VOMITING [None]
